FAERS Safety Report 24319317 (Version 1)
Quarter: 2024Q3

REPORT INFORMATION
  Report Type: Report from Study
  Country: CA (occurrence: CA)
  Receive Date: 20240914
  Receipt Date: 20240914
  Transmission Date: 20241016
  Serious: Yes (Hospitalization, Other)
  Sender: ABBVIE
  Company Number: CA-ABBVIE-5882582

PATIENT
  Age: 81 Year
  Sex: Female

DRUGS (1)
  1. SKYRIZI [Suspect]
     Active Substance: RISANKIZUMAB-RZAA
     Indication: Crohn^s disease
     Route: 058
     Dates: start: 20240123

REACTIONS (4)
  - Intestinal perforation [Unknown]
  - Diverticulitis intestinal perforated [Unknown]
  - Infection [Unknown]
  - Abscess rupture [Unknown]

NARRATIVE: CASE EVENT DATE: 20240101
